FAERS Safety Report 8067716-X (Version None)
Quarter: 2012Q1

REPORT INFORMATION
  Report Type: 
  Country: None (occurrence: None)
  Receive Date: 20120124
  Receipt Date: 20120120
  Transmission Date: 20120608
  Serious: Yes (Other)
  Sender: FDA-Public Use
  Company Number: US-PFIZER INC-2012003411

PATIENT
  Sex: Male
  Weight: 95 kg

DRUGS (5)
  1. HYDROCODONE [Concomitant]
     Indication: PAIN
     Dosage: UNK
  2. CYCLOBENZAPRINE [Concomitant]
     Indication: MUSCLE DISORDER
     Dosage: UNK
  3. LIPITOR [Suspect]
     Indication: BLOOD CHOLESTEROL INCREASED
     Dosage: 40 MG, 1X/DAY
     Route: 048
  4. LYRICA [Suspect]
     Indication: NERVOUS SYSTEM DISORDER
     Dosage: 75 MG, 2X/DAY
     Route: 048
     Dates: start: 20111201
  5. SPIRIVA [Suspect]
     Dosage: UNK

REACTIONS (6)
  - BACK DISORDER [None]
  - PAIN [None]
  - NERVE INJURY [None]
  - HYPERTENSION [None]
  - CHRONIC OBSTRUCTIVE PULMONARY DISEASE [None]
  - NEUROPATHY PERIPHERAL [None]
